FAERS Safety Report 13507905 (Version 1)
Quarter: 2017Q2

REPORT INFORMATION
  Report Type: Spontaneous
  Country: US (occurrence: US)
  Receive Date: 20170503
  Receipt Date: 20170503
  Transmission Date: 20170830
  Serious: No
  Sender: FDA-Public Use
  Company Number: US-PFIZER INC-2017191087

PATIENT
  Sex: Male

DRUGS (1)
  1. XELJANZ XR [Suspect]
     Active Substance: TOFACITINIB CITRATE
     Dosage: 11 MG, UNK

REACTIONS (14)
  - Sleep disorder [Unknown]
  - Tenderness [Unknown]
  - Nodal osteoarthritis [Unknown]
  - Musculoskeletal deformity [Unknown]
  - Arthralgia [Unknown]
  - Back pain [Unknown]
  - Myalgia [Unknown]
  - Synovitis [Unknown]
  - Tendonitis [Unknown]
  - Drug effect incomplete [Unknown]
  - Peripheral swelling [Unknown]
  - Musculoskeletal discomfort [Not Recovered/Not Resolved]
  - Increased tendency to bruise [Unknown]
  - Pain [Unknown]
